FAERS Safety Report 21365080 (Version 1)
Quarter: 2022Q3

REPORT INFORMATION
  Report Type: Spontaneous
  Country: FR (occurrence: FR)
  Receive Date: 20220922
  Receipt Date: 20220922
  Transmission Date: 20221026
  Serious: Yes (Other)
  Sender: FDA-Public Use
  Company Number: None

PATIENT
  Age: 42 Year
  Sex: Female
  Weight: 87 kg

DRUGS (7)
  1. SERTRALINE [Suspect]
     Active Substance: SERTRALINE HYDROCHLORIDE
     Indication: Depression
     Dosage: 75 MG, 1X/DAY
     Route: 048
     Dates: start: 202012
  2. MIRTAZAPINE [Suspect]
     Active Substance: MIRTAZAPINE
     Indication: Depression
     Dosage: 15 MG, 1X/DAY
     Route: 048
  3. QUETIAPINE [Suspect]
     Active Substance: QUETIAPINE
     Indication: Schizophrenia
     Dosage: 250 MG, 1X/DAY
     Route: 048
     Dates: start: 202011, end: 202102
  4. VALIUM [Suspect]
     Active Substance: DIAZEPAM
     Indication: Anxiety
     Dosage: 5 MG, 1X/DAY
     Route: 048
  5. LORMETAZEPAM [Suspect]
     Active Substance: LORMETAZEPAM
     Indication: Insomnia
     Dosage: 0.5 MG, 1X/DAY
     Route: 048
  6. RISPERDAL [Suspect]
     Active Substance: RISPERIDONE
     Indication: Schizophrenia
     Dosage: 1 DF, 1X/DAY
     Route: 048
     Dates: start: 200104, end: 202102
  7. MELATONIN [Concomitant]
     Active Substance: MELATONIN
     Dosage: 1 DF, 1X/DAY
     Route: 048
     Dates: start: 202103

REACTIONS (3)
  - Tardive dyskinesia [Recovering/Resolving]
  - Ataxia [Recovering/Resolving]
  - Vision blurred [Not Recovered/Not Resolved]

NARRATIVE: CASE EVENT DATE: 20210201
